FAERS Safety Report 8177298-X (Version None)
Quarter: 2012Q1

REPORT INFORMATION
  Report Type: 
  Country: None (occurrence: None)
  Receive Date: 20120301
  Receipt Date: 20120229
  Transmission Date: 20120608
  Serious: No
  Sender: FDA-Public Use
  Company Number: US-PFIZER INC-2011243987

PATIENT
  Sex: Male
  Weight: 90.703 kg

DRUGS (8)
  1. LEVOTHYROXINE [Concomitant]
     Dosage: 150 UG, EVERY OTHER DAY (QOD)
  2. ZALEPLON [Suspect]
     Dosage: 10 MG, AS NEEDED
     Route: 048
  3. ZALEPLON [Suspect]
     Indication: INSOMNIA
     Dosage: 10 MG, AS NEEDED
     Route: 048
     Dates: start: 20110816
  4. SONATA [Suspect]
     Indication: INSOMNIA
     Dosage: 10 MG, AS NEEDED
     Route: 048
  5. ADDERALL 5 [Concomitant]
     Dosage: 5 MG, UNK
  6. LEVOTHYROXINE [Concomitant]
     Dosage: 175 UG, EVERY OTHER DAY (QOD)
  7. CALCIUM [Concomitant]
     Dosage: UNK
  8. FISH OIL [Concomitant]
     Dosage: UNK

REACTIONS (1)
  - DRUG INEFFECTIVE [None]
